FAERS Safety Report 8167494-X (Version None)
Quarter: 2012Q1

REPORT INFORMATION
  Report Type: 
  Country: None (occurrence: None)
  Receive Date: 20120103
  Receipt Date: 20111011
  Transmission Date: 20120608
  Serious: No
  Sender: FDA-Public Use
  Company Number: AE-2011-002154

PATIENT
  Age: 62 Year
  Sex: Male
  Weight: 94.8018 kg

DRUGS (5)
  1. RIBAVIRIN [Concomitant]
  2. DIOVAN (CO-DIOVAN) [Concomitant]
  3. INCIVEK [Suspect]
     Dosage: 2250 MG (750 MG, 1 IN 8 HR), ORAL
     Route: 048
     Dates: start: 20110919
  4. PEGASYS [Concomitant]
  5. IBUPROFEN [Concomitant]

REACTIONS (4)
  - MYALGIA [None]
  - ARTHRALGIA [None]
  - NERVOUSNESS [None]
  - FATIGUE [None]
